FAERS Safety Report 19454103 (Version 1)
Quarter: 2021Q2

REPORT INFORMATION
  Report Type: Spontaneous
  Country: CA (occurrence: CA)
  Receive Date: 20210623
  Receipt Date: 20210623
  Transmission Date: 20210717
  Serious: Yes (Other)
  Sender: FDA-Public Use
  Company Number: NVSC2021CA136696

PATIENT
  Age: 65 Year
  Sex: Male
  Weight: 89.34 kg

DRUGS (1)
  1. SANDOZ METFORMIN FC [Suspect]
     Active Substance: METFORMIN HYDROCHLORIDE
     Indication: DIABETES MELLITUS
     Dosage: 1 G, BID
     Route: 048

REACTIONS (2)
  - Product substitution issue [Recovered/Resolved]
  - Diabetes mellitus inadequate control [Recovered/Resolved]
